FAERS Safety Report 18001085 (Version 3)
Quarter: 2021Q2

REPORT INFORMATION
  Report Type: Spontaneous
  Country: CA (occurrence: CA)
  Receive Date: 20200709
  Receipt Date: 20210628
  Transmission Date: 20210717
  Serious: Yes (Life-Threatening, Hospitalization, Other)
  Sender: FDA-Public Use
  Company Number: CA-TEVA-2020-CA-1797740

PATIENT
  Age: 6 Year
  Sex: Female
  Weight: 19 kg

DRUGS (41)
  1. ACYCLOVIR. [Concomitant]
     Active Substance: ACYCLOVIR
  2. CALCIUM + VITAMIN D [Concomitant]
     Active Substance: CALCIUM\VITAMIN D
  3. EPINEPHRINE. [Concomitant]
     Active Substance: EPINEPHRINE
  4. MAGNESIUM [Concomitant]
     Active Substance: MAGNESIUM
  5. NIFEDIPINE. [Concomitant]
     Active Substance: NIFEDIPINE
  6. MYCOPHENOLATE MOFETIL. [Suspect]
     Active Substance: MYCOPHENOLATE MOFETIL
     Indication: PROPHYLAXIS AGAINST GRAFT VERSUS HOST DISEASE
     Route: 042
  7. AMPHOTERICIN B. [Concomitant]
     Active Substance: AMPHOTERICIN B
  8. CICLOSPORIN [Concomitant]
     Active Substance: CYCLOSPORINE
  9. BUSULFAN. [Suspect]
     Active Substance: BUSULFAN
     Route: 042
  10. ACETAMINOPHEN. [Concomitant]
     Active Substance: ACETAMINOPHEN
  11. METHYLPREDNISOLONE NOS [Concomitant]
     Active Substance: METHYLPREDNISOLONE
  12. POLYETHYLENE GLYCOL [Concomitant]
     Active Substance: POLYETHYLENE GLYCOLS
  13. MYCOPHENOLATE MOFETIL. [Suspect]
     Active Substance: MYCOPHENOLATE MOFETIL
     Route: 042
  14. AMLODIPINE [Concomitant]
     Active Substance: AMLODIPINE BESYLATE
  15. CEFTAZIDIME. [Concomitant]
     Active Substance: CEFTAZIDIME
  16. CHLORHEXIDINE [Concomitant]
     Active Substance: CHLORHEXIDINE
  17. DIMENHYDRINATE. [Concomitant]
     Active Substance: DIMENHYDRINATE
  18. DIPHENHYDRAMINE. [Concomitant]
     Active Substance: DIPHENHYDRAMINE
  19. GANCICLOVIR. [Concomitant]
     Active Substance: GANCICLOVIR
  20. LORAZEPAM. [Concomitant]
     Active Substance: LORAZEPAM
  21. PIPERACILLIN AND TAZOBACTAM [Concomitant]
     Active Substance: PIPERACILLIN SODIUM\TAZOBACTAM SODIUM
  22. SODIUM [Concomitant]
     Active Substance: SODIUM
  23. MYCOPHENOLATE MOFETIL. [Suspect]
     Active Substance: MYCOPHENOLATE MOFETIL
     Indication: PROPHYLAXIS AGAINST GRAFT VERSUS HOST DISEASE
     Dosage: 1000 MILLIGRAM DAILY;
     Route: 048
  24. BUSULFAN. [Suspect]
     Active Substance: BUSULFAN
     Route: 042
  25. FUROSEMIDE. [Concomitant]
     Active Substance: FUROSEMIDE
  26. ANTI?THYMOCYTE GLOBULIN (RABBIT) NOS [Concomitant]
     Active Substance: LAPINE T-LYMPHOCYTE IMMUNE GLOBULIN
  27. RANITIDINE. [Concomitant]
     Active Substance: RANITIDINE
  28. HEPARIN CALCIUM [Concomitant]
     Active Substance: HEPARIN CALCIUM
  29. HYDROCORTISONE. [Concomitant]
     Active Substance: HYDROCORTISONE
  30. METRONIDAZOLE. [Concomitant]
     Active Substance: METRONIDAZOLE
  31. ONDANSETRON [Concomitant]
     Active Substance: ONDANSETRON
  32. PREDNISONE. [Concomitant]
     Active Substance: PREDNISONE
  33. TRIMETHOPRIM. [Concomitant]
     Active Substance: TRIMETHOPRIM
  34. DEXAMETHASONE. [Concomitant]
     Active Substance: DEXAMETHASONE
  35. LEVETIRACETAM. [Concomitant]
     Active Substance: LEVETIRACETAM
  36. METOCLOPRAMIDE. [Concomitant]
     Active Substance: METOCLOPRAMIDE
  37. TOBRAMYCIN. [Concomitant]
     Active Substance: TOBRAMYCIN
  38. VORICONAZOLE. [Concomitant]
     Active Substance: VORICONAZOLE
  39. FLUDARABINE [Suspect]
     Active Substance: FLUDARABINE PHOSPHATE
     Indication: STEM CELL TRANSPLANT
     Route: 042
  40. BUSULFAN. [Suspect]
     Active Substance: BUSULFAN
     Indication: STEM CELL TRANSPLANT
     Route: 042
  41. CETIRIZINE [Concomitant]
     Active Substance: CETIRIZINE HYDROCHLORIDE

REACTIONS (2)
  - Aplastic anaemia [Recovered/Resolved]
  - Myelosuppression [Recovered/Resolved]
